FAERS Safety Report 22293744 (Version 1)
Quarter: 2023Q2

REPORT INFORMATION
  Report Type: Spontaneous
  Country: FR (occurrence: FR)
  Receive Date: 20230508
  Receipt Date: 20230508
  Transmission Date: 20230721
  Serious: Yes (Hospitalization)
  Sender: FDA-Public Use
  Company Number: None

PATIENT
  Age: 75 Year
  Sex: Male
  Weight: 67 kg

DRUGS (22)
  1. ATORVASTATIN [Suspect]
     Active Substance: ATORVASTATIN
     Indication: Hypercholesterolaemia
     Dosage: 10 MG/D, FILM-COATED TABLET
     Dates: start: 20230111
  2. EMPAGLIFLOZIN [Suspect]
     Active Substance: EMPAGLIFLOZIN
     Indication: Cardiac failure
     Dosage: 10 MG/D,  FILM-COATED TABLETS
     Dates: start: 20230111, end: 20230120
  3. ALLOPURINOL [Concomitant]
     Active Substance: ALLOPURINOL
     Dosage: 100 MG/D
  4. PERINDOPRIL [Concomitant]
     Active Substance: PERINDOPRIL
     Indication: Hypertension
     Dosage: 4 MG/D
  5. JANUVIA [Concomitant]
     Active Substance: SITAGLIPTIN PHOSPHATE
     Dosage: 100 MG/D
  6. HYDREA [Concomitant]
     Active Substance: HYDROXYUREA
     Dosage: 500 MG, CAPSULE
  7. PRISTINAMYCIN [Concomitant]
     Active Substance: PRISTINAMYCIN
     Dates: start: 20230126, end: 20230203
  8. BETAHISTINE [Concomitant]
     Active Substance: BETAHISTINE
     Dosage: 8 MG X 2/DAY
  9. LERCANIDIPINE HYDROCHLORIDE [Concomitant]
     Active Substance: LERCANIDIPINE HYDROCHLORIDE
     Indication: Hypertension
     Dosage: 10 MG/D, 10 MG, SCORED FILM-COATED TABLET
  10. NOVORAPID [Concomitant]
     Active Substance: INSULIN ASPART
     Indication: Type 2 diabetes mellitus
     Dates: start: 20230204
  11. FUROSEMIDE [Concomitant]
     Active Substance: FUROSEMIDE
     Dosage: 500 MG/D
  12. PIRIBEDIL [Concomitant]
     Active Substance: PIRIBEDIL
     Dosage: 1 CP/D
  13. CLOXACILLIN [Concomitant]
     Active Substance: CLOXACILLIN
     Dosage: 1.5 G /4H
     Dates: start: 20230203, end: 20230206
  14. KARDEGIC [Concomitant]
     Active Substance: ASPIRIN DL-LYSINE
     Dosage: 75 MG, POWDER FOR ORAL SOLUTION IN SACHET-DOSE
  15. INSULIN GLARGINE [Concomitant]
     Active Substance: INSULIN GLARGINE
     Indication: Type 2 diabetes mellitus
     Dosage: ABASAGLAR 100 UNITS/ML, SOLUTION FOR INJECTION IN CARTRIDGE
     Dates: start: 20230204
  16. ALFUZOSIN [Concomitant]
     Active Substance: ALFUZOSIN
     Dosage: 10 MG/D, PROLONGED-RELEASE TABLET
  17. DOLIPRANE [Concomitant]
     Active Substance: ACETAMINOPHEN
     Indication: Pain
  18. ACEBUTOLOL [Concomitant]
     Active Substance: ACEBUTOLOL
     Indication: Cardiac failure
     Dosage: 200 MG/D, FILM-COATED TABLETS
  19. CEFAZOLIN [Concomitant]
     Active Substance: CEFAZOLIN
     Dosage: 1G/6H, 1 G/3 ML POWDER AND SOLUTION FOR PARENTERAL (IM) USE
     Dates: start: 20230206, end: 20230209
  20. METFORMIN ALMUS [Concomitant]
     Indication: Type 2 diabetes mellitus
     Dosage: 850 MG FILM-COATED TABLETS
  21. URAPIDIL [Concomitant]
     Active Substance: URAPIDIL
     Dosage: 90 MG/D
  22. TRAMADOL HYDROCHLORIDE [Concomitant]
     Active Substance: TRAMADOL HYDROCHLORIDE
     Indication: Pain
     Dosage: 50 MG, ORODISPERSIBLE TABLET
     Dates: start: 20230204

REACTIONS (1)
  - Subcutaneous abscess [Recovering/Resolving]

NARRATIVE: CASE EVENT DATE: 20230120
